FAERS Safety Report 6408167-0 (Version None)
Quarter: 2009Q4

REPORT INFORMATION
  Report Type: 
  Country: None (occurrence: None)
  Receive Date: 20091021
  Receipt Date: 20090918
  Transmission Date: 20100525
  Serious: Yes (Death, Other)
  Sender: FDA-Public Use
  Company Number: FR-CELGENEUS-056-50794-09100309

PATIENT

DRUGS (3)
  1. VIDAZA [Suspect]
     Route: 058
  2. VALPROIC ACID [Suspect]
     Indication: ACUTE MYELOID LEUKAEMIA
     Route: 065
  3. ATRA [Suspect]
     Indication: ACUTE MYELOID LEUKAEMIA
     Route: 065

REACTIONS (31)
  - ANAEMIA [None]
  - BRONCHITIS [None]
  - CARDIAC FAILURE [None]
  - CHRONIC OBSTRUCTIVE PULMONARY DISEASE [None]
  - CONSTIPATION [None]
  - DECREASED APPETITE [None]
  - DIABETES MELLITUS INADEQUATE CONTROL [None]
  - DIARRHOEA [None]
  - DISEASE PROGRESSION [None]
  - DISORIENTATION [None]
  - FATIGUE [None]
  - FUNGAL INFECTION [None]
  - GASTROINTESTINAL DISORDER [None]
  - HEADACHE [None]
  - INFECTION [None]
  - INFLUENZA [None]
  - INJECTION SITE REACTION [None]
  - LUNG DISORDER [None]
  - NAUSEA [None]
  - NEUTROPENIA [None]
  - ORAL HERPES [None]
  - PANCYTOPENIA [None]
  - PYREXIA [None]
  - SKIN LESION [None]
  - SOMNOLENCE [None]
  - STOMATITIS [None]
  - THROMBOCYTOPENIA [None]
  - TOOTH ABSCESS [None]
  - URINARY TRACT INFECTION BACTERIAL [None]
  - VERTIGO [None]
  - VOMITING [None]
